FAERS Safety Report 7980828-1 (Version None)
Quarter: 2011Q4

REPORT INFORMATION
  Report Type: 
  Country: None (occurrence: None)
  Receive Date: 20111214
  Receipt Date: 20111130
  Transmission Date: 20120403
  Serious: Yes (Life-Threatening, Hospitalization, Other)
  Sender: FDA-Public Use
  Company Number: US-ROCHE-1018108

PATIENT
  Sex: Female

DRUGS (18)
  1. SPIRIVA [Concomitant]
  2. VITAMIN B-12 [Concomitant]
  3. PULMICORT [Concomitant]
  4. CEFUROXIME AXETIL [Concomitant]
  5. BROVANA [Concomitant]
  6. ALTACE [Concomitant]
  7. DEXLANSOPRAZOLE [Concomitant]
  8. DEXALTIN [Concomitant]
  9. BENTYL [Concomitant]
  10. XOLAIR [Suspect]
     Indication: PRODUCT USED FOR UNKNOWN INDICATION
     Dates: start: 20111118
  11. CALCIUM [Concomitant]
  12. PREDNISONE TAB [Suspect]
     Indication: PRODUCT USED FOR UNKNOWN INDICATION
  13. HYDROCORTISONE [Concomitant]
  14. VITAMIN D [Concomitant]
  15. CHLORDIAZEPOXIDE/CLIDINIUM BR [Concomitant]
  16. CRESTOR [Concomitant]
  17. ASACOL [Concomitant]
  18. ZEGERID [Concomitant]

REACTIONS (11)
  - DIARRHOEA [None]
  - PRURITUS [None]
  - SKIN BURNING SENSATION [None]
  - ESCHERICHIA URINARY TRACT INFECTION [None]
  - SWELLING FACE [None]
  - PYREXIA [None]
  - DYSPNOEA [None]
  - PAIN [None]
  - CHILLS [None]
  - RASH [None]
  - ERYTHEMA [None]
